FAERS Safety Report 6862601-0 (Version None)
Quarter: 2010Q3

REPORT INFORMATION
  Report Type: 
  Country: None (occurrence: None)
  Receive Date: 20100716
  Receipt Date: 20100702
  Transmission Date: 20110219
  Serious: No
  Sender: FDA-Public Use
  Company Number: FR-2010-1511

PATIENT
  Age: 65 Year
  Sex: Female

DRUGS (4)
  1. NAVELBINE [Suspect]
     Indication: BREAST CANCER
     Dates: start: 20080401, end: 20080901
  2. TAXOTERE [Suspect]
     Indication: BREAST CANCER
     Dates: start: 20080401
  3. DAUNORUBICIN HCL [Suspect]
     Indication: ACUTE LEUKAEMIA
     Dates: start: 20030124, end: 20040501
  4. ARACYTINE [Suspect]
     Indication: ACUTE LEUKAEMIA
     Dates: start: 20030124, end: 20040501

REACTIONS (4)
  - ACUTE PULMONARY OEDEMA [None]
  - BRONCHITIS [None]
  - CARDIAC FAILURE [None]
  - CARDIOMEGALY [None]
